FAERS Safety Report 6857997-X (Version None)
Quarter: 2010Q3

REPORT INFORMATION
  Report Type: 
  Country: None (occurrence: None)
  Receive Date: 20100719
  Receipt Date: 20100719
  Transmission Date: 20110219
  Serious: Yes (Other)
  Sender: FDA-Public Use
  Company Number: None

PATIENT
  Sex: Female

DRUGS (1)
  1. EXTRA STRENGTH, NON ASPIRIN PAIL RELIEVER APAP [Suspect]
     Dosage: 047

REACTIONS (4)
  - ACCIDENTAL DRUG INTAKE BY CHILD [None]
  - MEDICATION ERROR [None]
  - PRODUCT COATING ISSUE [None]
  - PRODUCT LABEL ISSUE [None]
